FAERS Safety Report 16370753 (Version 2)
Quarter: 2019Q2

REPORT INFORMATION
  Report Type: Spontaneous
  Country: US (occurrence: US)
  Receive Date: 20190530
  Receipt Date: 20190626
  Transmission Date: 20190711
  Serious: Yes (Hospitalization, Other)
  Sender: FDA-Public Use
  Company Number: US-SA-2019SA146606

PATIENT
  Age: 21 Year
  Sex: Male
  Weight: 80 kg

DRUGS (35)
  1. LEMTRADA [Suspect]
     Active Substance: ALEMTUZUMAB
     Dosage: UNK UNK, UNK
     Route: 041
  2. KCENTRA [Concomitant]
     Active Substance: COAGULATION FACTOR IX HUMAN\COAGULATION FACTOR VII HUMAN\COAGULATION FACTOR X HUMAN\PROTEIN C\PROTEIN S HUMAN\PROTHROMBIN
     Dosage: UNK UNK, QD
     Route: 065
     Dates: start: 20190223, end: 20190224
  3. BACLOFEN. [Concomitant]
     Active Substance: BACLOFEN
     Dosage: 10 MG, Q8H
     Route: 048
  4. DULOXETINE. [Concomitant]
     Active Substance: DULOXETINE
     Dosage: 30 MG, BID
     Route: 048
  5. MILK OF MAGNESIA [Concomitant]
     Active Substance: MAGNESIUM HYDROXIDE
     Dosage: 30 ML, TID
     Route: 048
  6. RITUXAN [Concomitant]
     Active Substance: RITUXIMAB
     Dosage: UNK
     Route: 065
     Dates: start: 20190105
  7. VELCADE [Concomitant]
     Active Substance: BORTEZOMIB
     Dosage: UNK
     Route: 065
     Dates: start: 20190314
  8. TIZANIDINE. [Concomitant]
     Active Substance: TIZANIDINE
     Dosage: 4 MG, HS
     Route: 048
  9. PREDNISONE. [Concomitant]
     Active Substance: PREDNISONE
     Dosage: 50 MG, QD
     Route: 048
  10. PROTONIX [OMEPRAZOLE] [Concomitant]
     Active Substance: OMEPRAZOLE
     Route: 065
  11. PREDNISONE. [Concomitant]
     Active Substance: PREDNISONE
     Dosage: 25 MG, QD
     Route: 048
  12. NEXIUM I.V. [Concomitant]
     Active Substance: ESOMEPRAZOLE SODIUM
     Dosage: 20 MG
     Route: 048
  13. VITAMIN D [VITAMIN D NOS] [Concomitant]
     Active Substance: VITAMIN D NOS
     Dosage: 250 MG, Q12H
     Route: 048
  14. PANTOPRAZOLE [Concomitant]
     Active Substance: PANTOPRAZOLE
     Dosage: 40 MG, BID
     Route: 048
  15. RITUXAN [Concomitant]
     Active Substance: RITUXIMAB
     Dosage: UNK
     Route: 065
     Dates: start: 20190309
  16. SENOKOT [Concomitant]
     Active Substance: SENNOSIDES
     Dosage: 8.6 MG, HS
     Route: 048
  17. PREDNISONE. [Concomitant]
     Active Substance: PREDNISONE
     Dosage: 75 MG, QD
     Route: 048
     Dates: start: 20190528
  18. RITUXAN [Concomitant]
     Active Substance: RITUXIMAB
     Dosage: UNK
     Route: 065
     Dates: start: 20190223
  19. VELCADE [Concomitant]
     Active Substance: BORTEZOMIB
     Dosage: UNK
     Route: 065
     Dates: start: 20190307
  20. VELCADE [Concomitant]
     Active Substance: BORTEZOMIB
     Dosage: UNK
     Route: 065
     Dates: start: 20190310
  21. ASCORBIC ACID. [Concomitant]
     Active Substance: ASCORBIC ACID
     Dosage: 500 MG, BID
     Route: 048
  22. PREDNISONE. [Concomitant]
     Active Substance: PREDNISONE
     Dosage: 100 MG, QD
     Route: 048
  23. ZINC SULFATE [Concomitant]
     Active Substance: ZINC SULFATE\ZINC SULFATE ANHYDROUS
     Dosage: 220 MG, QD
     Route: 048
  24. PREDNISONE. [Concomitant]
     Active Substance: PREDNISONE
     Dosage: 5 MG, QD
     Route: 048
  25. RITUXAN [Concomitant]
     Active Substance: RITUXIMAB
     Dosage: UNK
     Route: 065
     Dates: start: 20190302
  26. RITUXAN [Concomitant]
     Active Substance: RITUXIMAB
     Dosage: UNK
     Route: 065
     Dates: start: 20190316
  27. RITUXAN [Concomitant]
     Active Substance: RITUXIMAB
     Dosage: UNK
     Route: 065
     Dates: start: 20190329
  28. NOVOSEVEN [Concomitant]
     Active Substance: COAGULATION FACTOR VIIA RECOMBINANT HUMAN
     Route: 065
  29. COLACE [Concomitant]
     Active Substance: DOCUSATE SODIUM
     Dosage: 100 MG, BID
     Route: 048
  30. GABAPENTIN. [Concomitant]
     Active Substance: GABAPENTIN
     Dosage: 600 MG, Q6H
     Route: 048
  31. VITAMIN A [RETINOL] [Concomitant]
     Active Substance: RETINOL
     Dosage: 10000 INT UNITS/ QD
     Route: 048
  32. PREDNISONE. [Concomitant]
     Active Substance: PREDNISONE
     Dosage: 1.5 MG/KG
     Route: 065
     Dates: start: 20190221
  33. PREDNISONE. [Concomitant]
     Active Substance: PREDNISONE
     Dosage: 10 MG, QD
     Route: 048
  34. VELCADE [Concomitant]
     Active Substance: BORTEZOMIB
     Dosage: UNK
     Route: 065
     Dates: start: 20190317
  35. AMICAR [Concomitant]
     Active Substance: AMINOCAPROIC ACID
     Dosage: UNK
     Route: 065
     Dates: start: 20190304, end: 20190313

REACTIONS (39)
  - Ecchymosis [Recovered/Resolved]
  - Hydronephrosis [Unknown]
  - Peroneal nerve palsy [Recovering/Resolving]
  - Oedema peripheral [Unknown]
  - Normochromic normocytic anaemia [Unknown]
  - Lymphocyte percentage decreased [Not Recovered/Not Resolved]
  - Factor VIII deficiency [Unknown]
  - Pyelonephritis [Unknown]
  - Neutropenia [Unknown]
  - Paraesthesia [Recovering/Resolving]
  - Skin discolouration [Unknown]
  - Blood potassium decreased [Not Recovered/Not Resolved]
  - Haemoglobin decreased [Not Recovered/Not Resolved]
  - Dyspnoea [Recovered/Resolved]
  - Acquired haemophilia [Recovered/Resolved]
  - Urinary tract infection [Unknown]
  - Peripheral swelling [Recovered/Resolved]
  - Weight increased [Unknown]
  - Red cell distribution width increased [Not Recovered/Not Resolved]
  - Blood glucose increased [Not Recovered/Not Resolved]
  - Monocyte percentage increased [Recovered/Resolved]
  - Carbon dioxide decreased [Not Recovered/Not Resolved]
  - Blood urine present [Recovered/Resolved]
  - White blood cell count decreased [Recovered/Resolved]
  - Internal haemorrhage [Recovered/Resolved]
  - Mean cell haemoglobin concentration decreased [Recovered/Resolved]
  - Night sweats [Unknown]
  - Carpal tunnel syndrome [Not Recovered/Not Resolved]
  - Red blood cell count decreased [Recovered/Resolved]
  - Compartment syndrome [Unknown]
  - Abdominal pain [Unknown]
  - Haemorrhage urinary tract [Unknown]
  - Pain in extremity [Unknown]
  - Lymphocyte count decreased [Not Recovered/Not Resolved]
  - Coagulopathy [Unknown]
  - Musculoskeletal stiffness [Unknown]
  - Mean cell haemoglobin decreased [Not Recovered/Not Resolved]
  - Haematocrit decreased [Not Recovered/Not Resolved]
  - Chills [Unknown]

NARRATIVE: CASE EVENT DATE: 2019
